FAERS Safety Report 10023547 (Version 1)
Quarter: 2014Q1

REPORT INFORMATION
  Report Type: Spontaneous
  Country: US (occurrence: None)
  Receive Date: 20140106
  Receipt Date: 20140106
  Transmission Date: 20141002
  Serious: Yes (Other)
  Sender: FDA-Public Use
  Company Number: 2013-00131

PATIENT
  Age: 71 Year
  Sex: Female
  Weight: 88 kg

DRUGS (13)
  1. UNSPECIFIED ZICAM PRODUCT [Suspect]
     Indication: NASOPHARYNGITIS
     Route: 048
     Dates: start: 20131001, end: 20131004
  2. METFORMIN [Concomitant]
  3. LISINOPRIL [Concomitant]
  4. PRAVASTATIN [Concomitant]
  5. DAILY ASPIRIN [Concomitant]
  6. FLAX SEED [Concomitant]
  7. COENZYME Q-10 [Concomitant]
  8. RED YEAST RICE [Concomitant]
  9. VITAMIN B [Concomitant]
  10. VITAMIN D [Concomitant]
  11. BENADRYL [Concomitant]
  12. ZYRTEC [Concomitant]
  13. CLARITEN [Concomitant]

REACTIONS (3)
  - Ageusia [None]
  - Anosmia [None]
  - Weight decreased [None]
